FAERS Safety Report 5251181-1 (Version None)
Quarter: 2007Q1

REPORT INFORMATION
  Report Type: 
  Country: None (occurrence: None)
  Receive Date: 20070228
  Receipt Date: 20060912
  Transmission Date: 20070707
  Serious: No
  Sender: FDA-Public Use
  Company Number: US-GLAXOSMITHKLINE-A0619890A

PATIENT
  Age: 53 Year
  Sex: Female

DRUGS (4)
  1. LAMICTAL [Suspect]
     Indication: MAJOR DEPRESSION
     Dosage: 200MG PER DAY
     Route: 048
     Dates: start: 20020101
  2. FORTEO [Concomitant]
  3. HORMONE REPLACEMENT THERAPY [Concomitant]
  4. VITAMINS [Concomitant]

REACTIONS (3)
  - ALOPECIA [None]
  - HYPERKERATOSIS [None]
  - MADAROSIS [None]
